FAERS Safety Report 9421509 (Version 2)
Quarter: 2013Q4

REPORT INFORMATION
  Report Type: Spontaneous
  Country: US (occurrence: US)
  Receive Date: 20130726
  Receipt Date: 20131024
  Transmission Date: 20140711
  Serious: Yes (Hospitalization)
  Sender: FDA-Public Use
  Company Number: US-BIOGENIDEC-2013BI067352

PATIENT
  Age: 70 Year
  Sex: Female

DRUGS (1)
  1. TYSABRI [Suspect]
     Indication: MULTIPLE SCLEROSIS
     Route: 042
     Dates: start: 20110420, end: 2013

REACTIONS (9)
  - Fall [Recovered/Resolved]
  - Pneumothorax traumatic [Recovered/Resolved]
  - Rib fracture [Not Recovered/Not Resolved]
  - Cerebral haemorrhage [Recovered/Resolved]
  - Concussion [Recovered/Resolved]
  - Balance disorder [Not Recovered/Not Resolved]
  - Wrist fracture [Recovered/Resolved]
  - Mobility decreased [Not Recovered/Not Resolved]
  - Tremor [Not Recovered/Not Resolved]
